FAERS Safety Report 19676818 (Version 1)
Quarter: 2021Q3

REPORT INFORMATION
  Report Type: Spontaneous
  Country: US (occurrence: US)
  Receive Date: 20210809
  Receipt Date: 20210809
  Transmission Date: 20211014
  Serious: Yes (Other)
  Sender: FDA-Public Use
  Company Number: US-PFIZER INC-202100947795

PATIENT
  Age: 60 Year
  Sex: Female
  Weight: 68.03 kg

DRUGS (7)
  1. CITALOPRAM [Concomitant]
     Active Substance: CITALOPRAM HYDROBROMIDE
     Dosage: UNK
  2. IBRANCE [Suspect]
     Active Substance: PALBOCICLIB
     Indication: BREAST CANCER FEMALE
     Dosage: 125 MG, CYCLIC (DAILY FOR 21 DAYS ON, THEN 7 DAYS OFF )
     Route: 048
     Dates: start: 20210621
  3. CALCIUM + VITAMIN D3 [Concomitant]
     Active Substance: CALCIUM\CHOLECALCIFEROL
     Dosage: UNK (600 MG ?12.5 TABLET ER)
  4. FASLODEX [Concomitant]
     Active Substance: FULVESTRANT
     Dosage: UNK (250 MG/5ML SYRINGE)
  5. ATORVASTATIN CALCIUM. [Concomitant]
     Active Substance: ATORVASTATIN CALCIUM
     Dosage: UNK
  6. MORPHINE SULFATE. [Concomitant]
     Active Substance: MORPHINE SULFATE
     Dosage: UNK ( 15 MG TABLET SA)
  7. LORAZEPAM. [Concomitant]
     Active Substance: LORAZEPAM
     Dosage: UNK

REACTIONS (1)
  - White blood cell count decreased [Unknown]
